FAERS Safety Report 11738329 (Version 2)
Quarter: 2015Q4

REPORT INFORMATION
  Report Type: Spontaneous
  Country: US (occurrence: US)
  Receive Date: 20151113
  Receipt Date: 20151219
  Transmission Date: 20160304
  Serious: Yes (Hospitalization, Other)
  Sender: FDA-Public Use
  Company Number: US-009507513-1511USA005048

PATIENT
  Age: 62 Year
  Sex: Female

DRUGS (7)
  1. COMPAZINE [Concomitant]
     Active Substance: PROCHLORPERAZINE MALEATE
     Dosage: UNK
  2. VALERIAN [Concomitant]
     Active Substance: VALERIAN
     Dosage: UNK
  3. OXYCODONE [Concomitant]
     Active Substance: OXYCODONE
     Dosage: UNK
  4. KEYTRUDA [Suspect]
     Active Substance: PEMBROLIZUMAB
     Dosage: UNK,  THIRD TREATMENT
     Route: 042
     Dates: start: 20151103, end: 20151106
  5. KEYTRUDA [Suspect]
     Active Substance: PEMBROLIZUMAB
     Indication: ADRENOCORTICAL CARCINOMA
     Dosage: UNK
     Route: 042
     Dates: start: 201509, end: 2015
  6. HYDROMORPHONE [Concomitant]
     Active Substance: HYDROMORPHONE
     Dosage: UNK
  7. BACTROBAN (MUPIROCIN) [Concomitant]
     Dosage: UNK

REACTIONS (3)
  - Product use issue [Unknown]
  - Malignant neoplasm progression [Not Recovered/Not Resolved]
  - Cardiac operation [Unknown]

NARRATIVE: CASE EVENT DATE: 2015
